FAERS Safety Report 7893182-0 (Version None)
Quarter: 2011Q4

REPORT INFORMATION
  Report Type: 
  Country: None (occurrence: None)
  Receive Date: 20111104
  Receipt Date: 20111024
  Transmission Date: 20120403
  Serious: Yes (Other)
  Sender: FDA-Public Use
  Company Number: PHHY2011BR70826

PATIENT
  Sex: Female
  Weight: 66 kg

DRUGS (5)
  1. LACTULOSE [Concomitant]
     Indication: CONSTIPATION
     Dosage: 15 ML, DAILY
     Dates: start: 20110430
  2. SANDOSTATIN LAR [Suspect]
     Indication: ACROMEGALY
     Dosage: 30 MG, QMO
     Dates: start: 20061001
  3. SANDOSTATIN LAR [Suspect]
     Dosage: 10 MG, QMO
  4. METFORMIN HCL [Concomitant]
     Indication: DIABETES MELLITUS
     Dosage: 1 DF, DAILY
     Dates: start: 20100101
  5. DOSTINEX [Concomitant]
     Indication: HORMONE LEVEL ABNORMAL
     Dosage: 2 DF, A WEEK
     Dates: start: 20070101

REACTIONS (20)
  - CHOLELITHIASIS [None]
  - MENSTRUATION IRREGULAR [None]
  - BREAST MASS [None]
  - DYSPNOEA [None]
  - OVARIAN CYST [None]
  - CARDIAC DISORDER [None]
  - BLOOD CHOLESTEROL INCREASED [None]
  - BLOOD TRIGLYCERIDES INCREASED [None]
  - BLOOD PRESSURE DECREASED [None]
  - ANXIETY DISORDER [None]
  - PETECHIAE [None]
  - PANIC DISORDER [None]
  - ABDOMINAL DISTENSION [None]
  - ANAEMIA [None]
  - BREAST CYST [None]
  - HEART RATE INCREASED [None]
  - FLATULENCE [None]
  - VAGINAL HAEMORRHAGE [None]
  - CONSTIPATION [None]
  - FEAR [None]
